FAERS Safety Report 9157550 (Version 1)
Quarter: 2013Q1

REPORT INFORMATION
  Report Type: Spontaneous
  Country: US (occurrence: None)
  Receive Date: 20130311
  Receipt Date: 20130311
  Transmission Date: 20140127
  Serious: Yes (Hospitalization)
  Sender: FDA-Public Use
  Company Number: None

PATIENT
  Age: 93 Year
  Sex: Male
  Weight: 72 kg

DRUGS (2)
  1. RIVAROXABAN [Suspect]
     Indication: ANGIOPLASTY
     Route: 048
     Dates: start: 20130222, end: 20130307
  2. RIVAROXABAN [Suspect]
     Indication: ATRIAL FIBRILLATION
     Route: 048
     Dates: start: 20130222, end: 20130307

REACTIONS (4)
  - Epistaxis [None]
  - Lower gastrointestinal haemorrhage [None]
  - Haematochezia [None]
  - Creatinine renal clearance decreased [None]
